FAERS Safety Report 7550756-4 (Version None)
Quarter: 2011Q2

REPORT INFORMATION
  Report Type: 
  Country: None (occurrence: None)
  Receive Date: 20110609
  Receipt Date: 20110606
  Transmission Date: 20111010
  Serious: Yes (Disabling)
  Sender: FDA-Public Use
  Company Number: CIP11000588

PATIENT
  Age: 81 Year
  Sex: Female
  Weight: 46.7 kg

DRUGS (3)
  1. ACTONEL [Suspect]
     Indication: OSTEOPOROSIS
     Dosage: 35 MG ONCE A WEEK, ORAL
     Route: 048
     Dates: start: 20080101, end: 20090101
  2. THYROID PREPARATIONS [Concomitant]
  3. VITAMINS NOS (VITAMINS NOS) [Concomitant]

REACTIONS (5)
  - GINGIVAL ATROPHY [None]
  - LIP SWELLING [None]
  - MEDICAL DEVICE COMPLICATION [None]
  - PARAESTHESIA [None]
  - OSTEOPENIA [None]
